FAERS Safety Report 9012951 (Version 6)
Quarter: 2016Q1

REPORT INFORMATION
  Report Type: Spontaneous
  Country: US (occurrence: US)
  Receive Date: 20130114
  Receipt Date: 20160205
  Transmission Date: 20160526
  Serious: Yes (Hospitalization, Other)
  Sender: FDA-Public Use
  Company Number: US-GLAXOSMITHKLINE-A1008253A

PATIENT
  Age: 77 Year
  Sex: Female

DRUGS (5)
  1. LAMICTAL [Suspect]
     Active Substance: LAMOTRIGINE
     Dosage: 25 MG, U
     Dates: start: 2008
  2. LAMICTAL [Suspect]
     Active Substance: LAMOTRIGINE
     Indication: CEREBROVASCULAR ACCIDENT
     Dosage: 100 MG, U
     Dates: start: 200611
  3. LAMICTAL [Suspect]
     Active Substance: LAMOTRIGINE
     Dosage: 25 MG AND 100 MG TABLETS (UNSPECIFIED)
     Route: 065
     Dates: start: 20081217
  4. LAMICTAL [Suspect]
     Active Substance: LAMOTRIGINE
     Indication: SEIZURE
     Dosage: 25 MG, U
     Dates: start: 200611
  5. LAMICTAL [Suspect]
     Active Substance: LAMOTRIGINE
     Dosage: 100 MG, U
     Dates: start: 2008

REACTIONS (5)
  - Cerebrovascular accident [Unknown]
  - Compression fracture [Unknown]
  - Spinal fracture [Unknown]
  - Intestinal obstruction [Unknown]
  - Fall [Unknown]

NARRATIVE: CASE EVENT DATE: 200611
